FAERS Safety Report 16326574 (Version 2)
Quarter: 2019Q3

REPORT INFORMATION
  Report Type: Report from Study
  Country: US (occurrence: US)
  Receive Date: 20190517
  Receipt Date: 20190709
  Transmission Date: 20191004
  Serious: No
  Sender: FDA-Public Use
  Company Number: PHEH2019US021001

PATIENT
  Sex: Male

DRUGS (1)
  1. ENTRESTO [Suspect]
     Active Substance: SACUBITRIL\VALSARTAN
     Indication: PRODUCT USED FOR UNKNOWN INDICATION
     Dosage: UNK, BID
     Route: 048
     Dates: start: 201701

REACTIONS (5)
  - Dizziness [Unknown]
  - Hypersensitivity [Unknown]
  - Blood pressure decreased [Unknown]
  - Anxiety [Unknown]
  - Heat exhaustion [Unknown]
